FAERS Safety Report 22059246 (Version 2)
Quarter: 2023Q1

REPORT INFORMATION
  Report Type: Report from Study
  Country: CA (occurrence: None)
  Receive Date: 20230303
  Receipt Date: 20230314
  Transmission Date: 20230417
  Serious: Yes (Hospitalization, Disabling)
  Sender: FDA-Public Use
  Company Number: 2023A048581

PATIENT
  Sex: Male

DRUGS (3)
  1. CALQUENCE [Suspect]
     Active Substance: ACALABRUTINIB
     Indication: Chronic lymphocytic leukaemia
     Route: 048
     Dates: start: 20211206
  2. CALQUENCE [Suspect]
     Active Substance: ACALABRUTINIB
     Indication: Chronic lymphocytic leukaemia
     Route: 048
  3. REMDESIVIR [Concomitant]
     Active Substance: REMDESIVIR
     Dosage: 200 UG/100 UG FIVE DAYS

REACTIONS (19)
  - Hypoxia [Recovered/Resolved]
  - Nephrolithiasis [Recovered/Resolved]
  - Gallbladder rupture [Unknown]
  - Hypotension [Recovered/Resolved]
  - Pneumonia [Recovered/Resolved]
  - Febrile neutropenia [Recovered/Resolved]
  - Urosepsis [Recovered/Resolved]
  - Infection [Recovered/Resolved]
  - Asthenia [Unknown]
  - Dyspnoea [Recovered/Resolved]
  - Malaise [Recovered/Resolved]
  - Pyrexia [Recovered/Resolved]
  - Cough [Recovered/Resolved]
  - Tachycardia [Recovered/Resolved]
  - Skin warm [Recovered/Resolved]
  - Dry skin [Recovered/Resolved]
  - Somnolence [Unknown]
  - Anaemia [Unknown]
  - COVID-19 [Recovered/Resolved]
